FAERS Safety Report 8900788 (Version 2)
Quarter: 2012Q4

REPORT INFORMATION
  Report Type: 
  Country: IE (occurrence: IE)
  Receive Date: 20121109
  Receipt Date: 20121207
  Transmission Date: 20130627
  Serious: Yes (Death, Hospitalization, Other)
  Sender: FDA-Public Use
  Company Number: IE-ASTELLAS-2012US010791

PATIENT
  Age: 70 Year
  Sex: Female
  Weight: 50 kg

DRUGS (9)
  1. TARCEVA [Suspect]
     Indication: NON-SMALL CELL LUNG CANCER STAGE IV
     Dosage: 150 mg, UID/QD
     Route: 048
     Dates: start: 20120926, end: 20121030
  2. MINOCYCLINE [Suspect]
     Indication: PRODUCT USED FOR UNKNOWN INDICATION
     Dosage: 100 mg, bid
     Route: 048
     Dates: start: 20121010, end: 20121030
  3. MITOMYCIN [Concomitant]
     Indication: PRODUCT USED FOR UNKNOWN INDICATION
     Dosage: UNK
     Route: 065
  4. ANTIDEPRESSANTS [Concomitant]
     Indication: PRODUCT USED FOR UNKNOWN INDICATION
     Dosage: UNK
     Route: 065
  5. LYRICA [Concomitant]
     Indication: PAIN
     Dosage: UNK
     Route: 048
  6. CITALOPRAM [Concomitant]
     Indication: DEPRESSION
     Dosage: 20 mg, UID/QD
     Route: 048
  7. AMITRIPTYLINE [Concomitant]
     Indication: DEPRESSION
     Dosage: 100 mg, UID/QD
     Route: 048
     Dates: end: 20121030
  8. ZANIDIP [Concomitant]
     Indication: PRODUCT USED FOR UNKNOWN INDICATION
     Dosage: 10 mg, UID/QD
     Route: 048
     Dates: end: 20121030
  9. ASPIRIN W/DIPYRIDAMOLE [Concomitant]
     Indication: PRODUCT USED FOR UNKNOWN INDICATION
     Dosage: 25/200 mg BID
     Route: 048
     Dates: end: 20121030

REACTIONS (15)
  - Disseminated intravascular coagulation [Fatal]
  - Multi-organ failure [Fatal]
  - Pleural effusion [Unknown]
  - Gastrointestinal disorder [Unknown]
  - Peripheral ischaemia [Unknown]
  - Metastases to breast [Unknown]
  - Metastasis [Unknown]
  - Jaundice [Unknown]
  - Decreased appetite [Unknown]
  - Asthenia [Unknown]
  - Lethargy [Unknown]
  - Pancreatitis acute [Unknown]
  - Ascites [Unknown]
  - Dermatitis acneiform [Unknown]
  - Diarrhoea [Unknown]
